FAERS Safety Report 12911619 (Version 1)
Quarter: 2016Q4

REPORT INFORMATION
  Report Type: Spontaneous
  Country: US (occurrence: US)
  Receive Date: 20161104
  Receipt Date: 20161104
  Transmission Date: 20170207
  Serious: No
  Sender: FDA-Public Use
  Company Number: US-GALDERMA-US16006133

PATIENT
  Age: 15 Year
  Sex: Male

DRUGS (1)
  1. EPIDUO FORTE [Suspect]
     Active Substance: ADAPALENE\BENZOYL PEROXIDE
     Indication: PRODUCT USED FOR UNKNOWN INDICATION
     Dosage: 0.3/2.5%
     Route: 061

REACTIONS (4)
  - Eyelid oedema [Unknown]
  - Dermatitis allergic [Unknown]
  - Application site exfoliation [Unknown]
  - Erythema [Unknown]
